FAERS Safety Report 9474644 (Version 3)
Quarter: 2013Q4

REPORT INFORMATION
  Report Type: Spontaneous
  Country: US (occurrence: US)
  Receive Date: 20130823
  Receipt Date: 20131015
  Transmission Date: 20140711
  Serious: Yes (Hospitalization)
  Sender: FDA-Public Use
  Company Number: US-PURDUE-USA-2013-0105633

PATIENT
  Sex: Male

DRUGS (12)
  1. OXYCONTIN (NDA 22-272) [Suspect]
     Indication: PAIN
     Dosage: 10 MG, BID
     Route: 048
     Dates: start: 20121012
  2. OXYCONTIN (NDA 22-272) [Suspect]
     Dosage: 10 MG, Q6H
     Route: 048
     Dates: start: 20120406
  3. OXYCONTIN (NDA 22-272) [Suspect]
     Dosage: 20 MG, BID
     Route: 048
  4. OXYCODONE HYDROCHLORIDE (SIMILAR TO NDA 20-553) [Suspect]
     Indication: PAIN
     Dosage: 10 MG, BID
     Route: 048
     Dates: start: 20121012
  5. AXITINIB [Suspect]
     Indication: RENAL CELL CARCINOMA
     Dosage: 5 MG, DAILY
     Route: 048
     Dates: start: 20130514
  6. AXITINIB [Suspect]
     Dosage: 5 MG, BID
     Route: 048
     Dates: start: 20130301, end: 20130314
  7. AXITINIB [Suspect]
     Dosage: 5 MG, DAILY
     Route: 048
     Dates: start: 20130328, end: 20130415
  8. AXITINIB [Suspect]
     Dosage: UNK
     Dates: start: 20130706
  9. AXITINIB [Suspect]
     Dosage: 5 UNK, UNK
     Route: 048
     Dates: start: 20130716
  10. ZOMETA [Concomitant]
     Indication: METASTASES TO BONE
     Dosage: 4 MG, MONTHLY
     Route: 042
     Dates: start: 20121210
  11. AMLODIPINE [Concomitant]
     Indication: HYPERTENSION
     Dosage: 5 MG, DAILY
     Route: 048
  12. LASIX                              /00032601/ [Concomitant]
     Indication: HYPERTENSION
     Dosage: 40 MG, DAILY
     Route: 048

REACTIONS (4)
  - Gastrointestinal disorder [Unknown]
  - Dizziness [Recovered/Resolved]
  - Constipation [Recovered/Resolved]
  - Abdominal pain [Recovered/Resolved]
